FAERS Safety Report 4335950-8 (Version None)
Quarter: 2004Q2

REPORT INFORMATION
  Report Type: 
  Country: None (occurrence: None)
  Receive Date: 20040406
  Receipt Date: 20040322
  Transmission Date: 20050107
  Serious: Yes (Death, Other)
  Sender: FDA-Public Use
  Company Number: JP-SHR-04-022975

PATIENT
  Age: 13 Year
  Sex: Female

DRUGS (2)
  1. FLUDARA [Suspect]
     Indication: STEM CELL TRANSPLANT
     Dosage: 30 MG/M2, 1X/DAY
     Dates: start: 20030428, end: 20030503
  2. BUSULFAN [Concomitant]

REACTIONS (6)
  - BONE SARCOMA [None]
  - DISEASE PROGRESSION [None]
  - DRUG RESISTANCE [None]
  - MALIGNANT NEOPLASM PROGRESSION [None]
  - MALIGNANT PLEURAL EFFUSION [None]
  - STEM CELL TRANSPLANT [None]
